FAERS Safety Report 11071064 (Version 2)
Quarter: 2015Q2

REPORT INFORMATION
  Report Type: Spontaneous
  Country: US (occurrence: US)
  Receive Date: 20150428
  Receipt Date: 20150507
  Transmission Date: 20150821
  Serious: Yes (Hospitalization, Other)
  Sender: FDA-Public Use
  Company Number: US-AMGEN-USASP2015039789

PATIENT
  Age: 88 Year
  Sex: Female
  Weight: 46.26 kg

DRUGS (24)
  1. ANUSOL HC                          /00028604/ [Concomitant]
     Dosage: 25 MG, QD
     Route: 054
     Dates: start: 20140506
  2. PROCTOZONE HC [Concomitant]
     Active Substance: HYDROCORTISONE
     Dosage: 2.5 %,  UP TO 6 TIMES QD
     Route: 061
     Dates: start: 20141201
  3. AMOXIL                             /00249601/ [Concomitant]
     Active Substance: AMOXICILLIN
  4. ACIDOPHILUS                        /00079701/ [Concomitant]
     Dosage: 1 DF, QD
     Route: 048
     Dates: start: 20140506
  5. METROGEL [Concomitant]
     Active Substance: METRONIDAZOLE
     Dosage: 1 %, ONCE TO TWICW A DAY
     Route: 061
  6. OMEPRAZOLE. [Concomitant]
     Active Substance: OMEPRAZOLE
     Dosage: 20 MG, QD
     Route: 048
  7. LASIX [Concomitant]
     Active Substance: FUROSEMIDE
     Indication: PERIPHERAL VENOUS DISEASE
     Dosage: 20 MG, QD
     Route: 048
  8. RESTASIS [Concomitant]
     Active Substance: CYCLOSPORINE
     Dosage: 0.05 %, UNK
     Route: 047
     Dates: start: 20090818
  9. TYLENOL EXTRA STRENGTH [Concomitant]
     Active Substance: ACETAMINOPHEN
     Dosage: 500 MG, UNK
     Dates: start: 20100406
  10. B COMPLEX WITH B-12 [Concomitant]
     Dosage: UNK
     Dates: start: 20130710
  11. MUCINEX [Concomitant]
     Active Substance: GUAIFENESIN
     Dosage: 600 MG, UNK
     Dates: start: 20110623
  12. REFRESH OPTIVE [Concomitant]
     Active Substance: CARBOXYMETHYLCELLULOSE SODIUM\GLYCERIN
     Dosage: 0.5 % TO 0.9 % EYE DROPS
     Route: 047
     Dates: start: 20081016
  13. SPIRONOLACTONE. [Concomitant]
     Active Substance: SPIRONOLACTONE
     Dosage: 25 MG, UNK
     Route: 048
  14. TRIAMCINOLONE ACETONIDE. [Concomitant]
     Active Substance: TRIAMCINOLONE ACETONIDE
     Dosage: 0.025 %, BID
     Route: 061
     Dates: start: 20150312
  15. FLU VAX [Concomitant]
     Dosage: UNK
     Dates: start: 200910
  16. PROLIA [Suspect]
     Active Substance: DENOSUMAB
     Indication: OSTEOPOROSIS POSTMENOPAUSAL
     Dosage: 60 MG/ML, Q6MO
     Route: 058
     Dates: start: 20121126, end: 20141223
  17. LEVOTHYROXIN [Concomitant]
     Active Substance: LEVOTHYROXINE
     Dosage: 75 MUG, QD
     Route: 048
  18. SYSTANE NIGHTTIME [Concomitant]
     Active Substance: MINERAL OIL\PETROLATUM
     Dosage: 94 % TO 3 %
     Route: 047
     Dates: start: 20120110
  19. VENTOLIN HFA [Concomitant]
     Active Substance: ALBUTEROL SULFATE
     Dosage: 90 MUG, 2 PUFFS EVERY 4 TO 6 HRS AS NEEDED
     Dates: start: 20140218
  20. VITAMIN D3 [Concomitant]
     Active Substance: CHOLECALCIFEROL
     Dosage: 1000 UNIT, Q2WK
     Dates: start: 20120110
  21. ZOFRAN                             /00955301/ [Concomitant]
     Active Substance: ONDANSETRON HYDROCHLORIDE
     Indication: NAUSEA
     Dosage: 1 TO 2 PRN
  22. POTASSIUM 99 [Concomitant]
     Dosage: 99 MG, QD
     Route: 048
     Dates: start: 20140506
  23. PREMARIN [Concomitant]
     Active Substance: ESTROGENS, CONJUGATED
     Dosage: 0.3 MG, QD
     Route: 048
  24. LOMOTIL [Concomitant]
     Active Substance: ATROPINE SULFATE\DIPHENOXYLATE HYDROCHLORIDE
     Indication: DIARRHOEA
     Dosage: 2.5 MG TO 0.025 MG, Q6H
     Route: 048
     Dates: start: 20071114

REACTIONS (4)
  - Dysphonia [Unknown]
  - Hypocalcaemia [Unknown]
  - Hypoalbuminaemia [Unknown]
  - Hip fracture [Recovering/Resolving]

NARRATIVE: CASE EVENT DATE: 201504
